FAERS Safety Report 9601781 (Version 1)
Quarter: 2013Q4

REPORT INFORMATION
  Report Type: Spontaneous
  Country: DE (occurrence: None)
  Receive Date: 20131002
  Receipt Date: 20131002
  Transmission Date: 20140711
  Serious: Yes (Hospitalization)
  Sender: FDA-Public Use
  Company Number: 1309-1198

PATIENT
  Age: 85 Year
  Sex: Female

DRUGS (1)
  1. EYLEA (AFLIBERCEPT) [Suspect]
     Indication: AGE-RELATED MACULAR DEGENERATION
     Dosage: INTRAOCULAR
     Route: 031
     Dates: start: 20121101

REACTIONS (2)
  - Cardiac disorder [None]
  - Chest pain [None]
